FAERS Safety Report 8532576-7 (Version None)
Quarter: 2012Q3

REPORT INFORMATION
  Report Type: 
  Country: None (occurrence: None)
  Receive Date: 20120724
  Receipt Date: 20120720
  Transmission Date: 20120928
  Serious: No
  Sender: FDA-Public Use
  Company Number: US-PFIZER INC-2012176534

PATIENT
  Sex: Female

DRUGS (10)
  1. DIOVAN [Concomitant]
     Dosage: UNK
  2. HYDROCORTISONE [Concomitant]
     Dosage: UNK
  3. FLEXERIL [Concomitant]
     Dosage: UNK
  4. COUMADIN [Concomitant]
     Dosage: UNK
  5. SUTENT [Suspect]
     Dosage: 50 MG, 1X/DAY
     Route: 048
  6. FENTANYL [Concomitant]
     Dosage: UNK
  7. INDERAL [Concomitant]
     Dosage: UNK
  8. MIRALAX [Concomitant]
     Dosage: UNK
  9. FERROUS SULFATE TAB [Concomitant]
     Dosage: UNK
  10. LORTAB [Concomitant]
     Dosage: UNK

REACTIONS (1)
  - DEEP VEIN THROMBOSIS [None]
